FAERS Safety Report 5207396-1 (Version None)
Quarter: 2007Q1

REPORT INFORMATION
  Report Type: 
  Country: None (occurrence: None)
  Receive Date: 20070112
  Receipt Date: 20070105
  Transmission Date: 20070707
  Serious: Yes (Hospitalization)
  Sender: FDA-Public Use
  Company Number: BR-SHR-BR-2007-000628

PATIENT
  Age: 30 Year
  Sex: Female

DRUGS (2)
  1. MIRENA [Suspect]
     Dosage: 20 A?G/DAY, CONT
     Route: 015
     Dates: start: 20030805
  2. VITAMINS [Concomitant]
     Dosage: UNK, UNK
     Route: 048

REACTIONS (3)
  - AMENORRHOEA [None]
  - METRORRHAGIA [None]
  - SURGERY [None]
